FAERS Safety Report 12538301 (Version 1)
Quarter: 2016Q3

REPORT INFORMATION
  Report Type: Spontaneous
  Country: FR (occurrence: FR)
  Receive Date: 20160707
  Receipt Date: 20160707
  Transmission Date: 20161109
  Serious: Yes (Hospitalization)
  Sender: FDA-Public Use
  Company Number: FR-GILEAD-2016-0221440

PATIENT
  Age: 69 Year
  Sex: Male

DRUGS (20)
  1. LERCAN [Concomitant]
     Active Substance: LERCANIDIPINE
  2. SERESTA [Concomitant]
     Active Substance: OXAZEPAM
  3. VITAMIN B12 [Concomitant]
     Active Substance: CYANOCOBALAMIN
  4. RIBAVIRIN. [Suspect]
     Active Substance: RIBAVIRIN
     Indication: CHRONIC HEPATITIS C
     Dosage: 400 MG, BID
     Route: 048
     Dates: start: 20151123, end: 20160215
  5. COAPROVEL [Concomitant]
     Active Substance: HYDROCHLOROTHIAZIDE\IRBESARTAN
  6. KAYEXALATE [Concomitant]
     Active Substance: SODIUM POLYSTYRENE SULFONATE
  7. SEROPLEX [Concomitant]
     Active Substance: ESCITALOPRAM OXALATE
  8. SPECIAFOLDINE [Concomitant]
     Active Substance: FOLIC ACID
  9. HARVONI [Suspect]
     Active Substance: LEDIPASVIR\SOFOSBUVIR
     Indication: CHRONIC HEPATITIS C
     Dosage: 1 DF, QD
     Route: 048
     Dates: start: 20151123, end: 20160215
  10. TEMERIT [Concomitant]
     Active Substance: NEBIVOLOL
  11. GLUCOPHAGE [Concomitant]
     Active Substance: METFORMIN HYDROCHLORIDE
  12. KARDEGIC [Concomitant]
     Active Substance: ASPIRIN LYSINE
  13. ONGLYZA [Concomitant]
     Active Substance: SAXAGLIPTIN HYDROCHLORIDE
  14. ADENURIC [Concomitant]
     Active Substance: FEBUXOSTAT
  15. RENUTRYL [Concomitant]
  16. LANTUS [Concomitant]
     Active Substance: INSULIN GLARGINE
  17. TARDYFERON [Concomitant]
     Active Substance: FERROUS SULFATE
  18. NOVONORM [Concomitant]
     Active Substance: REPAGLINIDE
  19. TAHOR [Concomitant]
     Active Substance: ATORVASTATIN CALCIUM
  20. PLAVIX [Concomitant]
     Active Substance: CLOPIDOGREL BISULFATE

REACTIONS (2)
  - Malaise [Recovered/Resolved]
  - Bradycardia [Recovered/Resolved]

NARRATIVE: CASE EVENT DATE: 201512
